FAERS Safety Report 8578681 (Version 3)
Quarter: 2014Q3

REPORT INFORMATION
  Report Type: Spontaneous
  Country: IL (occurrence: IL)
  Receive Date: 20120524
  Receipt Date: 20140814
  Transmission Date: 20150326
  Serious: Yes (Death, Life-Threatening)
  Sender: FDA-Public Use
  Company Number: IL-GLAXOSMITHKLINE-B0803594A

PATIENT
  Age: 68 Year
  Sex: Female

DRUGS (4)
  1. ASPIRINE [Concomitant]
     Active Substance: ASPIRIN
     Dosage: 100MG PER DAY
     Route: 048
  2. PREDNISON [Concomitant]
     Active Substance: PREDNISONE
     Dosage: 10MG PER DAY
     Route: 048
  3. DANAZOL. [Concomitant]
     Active Substance: DANAZOL
     Dosage: 200MG PER DAY
     Route: 048
  4. REVOLADE [Suspect]
     Active Substance: ELTROMBOPAG
     Indication: IMMUNE THROMBOCYTOPENIC PURPURA
     Dosage: 500MG PER DAY
     Route: 048

REACTIONS (5)
  - Aphasia [Unknown]
  - Transient ischaemic attack [Unknown]
  - Platelet count increased [Unknown]
  - Headache [Unknown]
  - Death [Fatal]

NARRATIVE: CASE EVENT DATE: 20110510
